FAERS Safety Report 12643660 (Version 1)
Quarter: 2016Q3

REPORT INFORMATION
  Report Type: Spontaneous
  Country: US (occurrence: US)
  Receive Date: 20160811
  Receipt Date: 20160811
  Transmission Date: 20161109
  Serious: No
  Sender: FDA-Public Use
  Company Number: US-BEH-2016072336

PATIENT
  Age: 76 Year
  Sex: Male
  Weight: 85.71 kg

DRUGS (23)
  1. PREDNISONE. [Concomitant]
     Active Substance: PREDNISONE
  2. ZEMAIRA [Suspect]
     Active Substance: .ALPHA.1-PROTEINASE INHIBITOR HUMAN
     Indication: COMPLEMENT DEFICIENCY DISEASE
     Dosage: 60 MG, QW
     Route: 042
     Dates: start: 20141111
  3. CITALOPRAM [Concomitant]
     Active Substance: CITALOPRAM HYDROBROMIDE
  4. CALCIUM [Concomitant]
     Active Substance: CALCIUM
  5. NORCO [Concomitant]
     Active Substance: ACETAMINOPHEN\HYDROCODONE BITARTRATE
  6. ASPIRIN. [Concomitant]
     Active Substance: ASPIRIN
  7. SERTRALINE [Concomitant]
     Active Substance: SERTRALINE HYDROCHLORIDE
  8. SODIUM CHLORIDE. [Concomitant]
     Active Substance: SODIUM CHLORIDE
  9. VITAMIN D                          /00107901/ [Concomitant]
     Active Substance: ERGOCALCIFEROL
  10. LISINOPRIL. [Concomitant]
     Active Substance: LISINOPRIL
  11. DOXYCYCLINE. [Concomitant]
     Active Substance: DOXYCYCLINE
  12. AMOXICILLIN. [Concomitant]
     Active Substance: AMOXICILLIN
  13. ASMANEX [Concomitant]
     Active Substance: MOMETASONE FUROATE
  14. TYLENOL [Concomitant]
     Active Substance: ACETAMINOPHEN
  15. OMEPRAZOLE. [Concomitant]
     Active Substance: OMEPRAZOLE
  16. ZEMAIRA [Suspect]
     Active Substance: .ALPHA.1-PROTEINASE INHIBITOR HUMAN
     Indication: IMMUNODEFICIENCY COMMON VARIABLE
  17. FLUNISOLIDE. [Concomitant]
     Active Substance: FLUNISOLIDE
  18. DIPHENHYDRAMINE. [Concomitant]
     Active Substance: DIPHENHYDRAMINE
  19. EPIPEN [Concomitant]
     Active Substance: EPINEPHRINE
  20. ONDANSETRON [Concomitant]
     Active Substance: ONDANSETRON
  21. RANITIDINE. [Concomitant]
     Active Substance: RANITIDINE
  22. FORADIL [Concomitant]
     Active Substance: FORMOTEROL FUMARATE
  23. CLONAZEPAM. [Concomitant]
     Active Substance: CLONAZEPAM

REACTIONS (1)
  - Sinusitis [Unknown]

NARRATIVE: CASE EVENT DATE: 20160408
